FAERS Safety Report 8616616-2 (Version None)
Quarter: 2012Q3

REPORT INFORMATION
  Report Type: 
  Country: None (occurrence: None)
  Receive Date: 20120823
  Receipt Date: 20120820
  Transmission Date: 20120928
  Serious: Yes (Death)
  Sender: FDA-Public Use
  Company Number: US-BAXTER-2012BAX014900

PATIENT
  Sex: Male

DRUGS (3)
  1. DIANEAL [Suspect]
     Indication: PERITONEAL DIALYSIS
     Route: 033
     Dates: end: 20120814
  2. DIANEAL [Suspect]
     Route: 033
     Dates: end: 20120814
  3. DIANEAL [Suspect]
     Route: 033
     Dates: end: 20120814

REACTIONS (1)
  - CARDIAC FAILURE [None]
